FAERS Safety Report 18413351 (Version 1)
Quarter: 2020Q4

REPORT INFORMATION
  Report Type: Spontaneous
  Country: KR (occurrence: KR)
  Receive Date: 20201022
  Receipt Date: 20201022
  Transmission Date: 20210114
  Serious: Yes (Life-Threatening, Hospitalization, Other)
  Sender: FDA-Public Use
  Company Number: KR-LUPIN PHARMACEUTICALS INC.-2020-07710

PATIENT
  Age: 51 Year
  Sex: Male

DRUGS (7)
  1. IVABRADINE [Interacting]
     Active Substance: IVABRADINE
     Indication: TACHYCARDIA
     Dosage: 10 MILLIGRAM (DOSE INCREASED TO 10 MG, NINE DAYS AFTER ADMISSION)
     Route: 065
  2. FUROSEMIDE. [Interacting]
     Active Substance: FUROSEMIDE
     Indication: CARDIAC FAILURE
     Dosage: 20 MILLIGRAM
     Route: 048
  3. CARVEDILOL. [Interacting]
     Active Substance: CARVEDILOL
     Dosage: 12.5 MILLIGRAM (INCREASED CARVEDILOL TO 12.5 MG, SEVEN DAYS AFTER ADMISSION)
     Route: 065
  4. CARVEDILOL. [Interacting]
     Active Substance: CARVEDILOL
     Indication: CARDIAC FAILURE
     Dosage: 6.25 MILLIGRAM
     Route: 065
  5. SPIRONOLACTONE. [Interacting]
     Active Substance: SPIRONOLACTONE
     Indication: CARDIAC FAILURE
     Dosage: 12.5 MILLIGRAM
     Route: 016
  6. VALSARTAN. [Suspect]
     Active Substance: VALSARTAN
     Indication: CARDIAC FAILURE
     Dosage: 40 MILLIGRAM
     Route: 065
  7. IVABRADINE [Interacting]
     Active Substance: IVABRADINE
     Indication: CARDIAC FAILURE
     Dosage: 5 MILLIGRAM, BID
     Route: 016

REACTIONS (6)
  - Torsade de pointes [Recovering/Resolving]
  - Drug interaction [Unknown]
  - Syncope [Recovering/Resolving]
  - Drug interaction [Recovering/Resolving]
  - Bradycardia [Unknown]
  - Drug level increased [Recovering/Resolving]
